FAERS Safety Report 19446814 (Version 1)
Quarter: 2021Q2

REPORT INFORMATION
  Report Type: Spontaneous
  Country: US (occurrence: US)
  Receive Date: 20210619
  Receipt Date: 20210619
  Transmission Date: 20210717
  Serious: No
  Sender: FDA-Public Use
  Company Number: None

PATIENT
  Age: 68 Year
  Sex: Male

DRUGS (1)
  1. COPAXONE [Suspect]
     Active Substance: GLATIRAMER ACETATE
     Dosage: OTHER
     Route: 058
     Dates: start: 201910, end: 20210618

REACTIONS (4)
  - Dizziness [None]
  - Anal incontinence [None]
  - Fatigue [None]
  - Immediate post-injection reaction [None]

NARRATIVE: CASE EVENT DATE: 20210618
